FAERS Safety Report 8662928 (Version 3)
Quarter: 2012Q4

REPORT INFORMATION
  Report Type: Report from Study
  Country: AU (occurrence: AU)
  Receive Date: 20120712
  Receipt Date: 20121212
  Transmission Date: 20130627
  Serious: Yes (Death, Hospitalization, Other)
  Sender: FDA-Public Use
  Company Number: AU-ROCHE-1085083

PATIENT
  Age: 70 Year

DRUGS (13)
  1. METHOXY POLYETHYLENE GLYCOL-EPOETIN BETA [Suspect]
     Indication: NEPHROGENIC ANAEMIA
     Route: 058
     Dates: start: 20110912, end: 20120628
  2. SODIUM BICARBONATE [Concomitant]
  3. FUROSEMIDE [Concomitant]
  4. EPROSARTAN [Concomitant]
  5. SPIRONOLACTONE [Concomitant]
  6. ASPIRIN [Concomitant]
  7. RABEPRAZOLE [Concomitant]
  8. SIMVASTATIN [Concomitant]
  9. GLICLAZIDE [Concomitant]
  10. PARACETAMOL [Concomitant]
  11. NOVOMIX [Concomitant]
  12. CHOLECALCIFEROL [Concomitant]
  13. CHLORPROMAZINE [Concomitant]

REACTIONS (8)
  - Sepsis [Fatal]
  - Multi-organ failure [Fatal]
  - Hypoglycaemia [Unknown]
  - Acute hepatic failure [Unknown]
  - Renal failure [Unknown]
  - Skin ulcer [Unknown]
  - White blood cell count increased [Unknown]
  - C-reactive protein increased [Unknown]
